FAERS Safety Report 13593870 (Version 1)
Quarter: 2017Q2

REPORT INFORMATION
  Report Type: Spontaneous
  Country: US (occurrence: US)
  Receive Date: 20170530
  Receipt Date: 20170530
  Transmission Date: 20170830
  Serious: No
  Sender: FDA-Public Use
  Company Number: US-BAYER-2017-092257

PATIENT
  Age: 49 Year
  Sex: Female
  Weight: 104 kg

DRUGS (7)
  1. NEORAL [Concomitant]
     Active Substance: CYCLOSPORINE
  2. RABEPRAZOLE [Concomitant]
     Active Substance: RABEPRAZOLE
  3. CELLCEPT [Concomitant]
     Active Substance: MYCOPHENOLATE MOFETIL\MYCOPHENOLATE MOFETIL HYDROCHLORIDE
  4. MIRALAX [Suspect]
     Active Substance: POLYETHYLENE GLYCOL 3350
     Indication: GASTROINTESTINAL DISORDER
     Dosage: ;1 /ONCE DAILY TABLESPOON
     Route: 047
  5. PREDNISONE. [Concomitant]
     Active Substance: PREDNISONE
  6. INSULIN [Concomitant]
     Active Substance: INSULIN NOS
  7. MIRALAX [Suspect]
     Active Substance: POLYETHYLENE GLYCOL 3350
     Indication: GASTROINTESTINAL DISORDER
     Dosage: ;1 /ONCE DAILY TABLESPOON
     Route: 048

REACTIONS (4)
  - Off label use [Unknown]
  - Therapeutic response unexpected [None]
  - Product use issue [Unknown]
  - Product use in unapproved indication [Unknown]

NARRATIVE: CASE EVENT DATE: 2015
